FAERS Safety Report 6763394-8 (Version None)
Quarter: 2010Q2

REPORT INFORMATION
  Report Type: 
  Country: None (occurrence: None)
  Receive Date: 20100610
  Receipt Date: 20100604
  Transmission Date: 20101027
  Serious: Yes (Death)
  Sender: FDA-Public Use
  Company Number: JP-BAYER-201010465BYL

PATIENT
  Age: 80 Year
  Sex: Male
  Weight: 47 kg

DRUGS (8)
  1. NEXAVAR [Suspect]
     Indication: HEPATIC NEOPLASM MALIGNANT
     Dosage: TOTAL DAILY DOSE: 800 MG  UNIT DOSE: 200 MG
     Route: 048
     Dates: start: 20090810, end: 20100125
  2. GLAKAY [Concomitant]
     Route: 048
     Dates: start: 20090810
  3. URSO 250 [Concomitant]
     Route: 048
     Dates: start: 20090810
  4. AMLODIN [Concomitant]
     Route: 048
     Dates: start: 20090810
  5. OMEPRAZOLE [Concomitant]
     Route: 048
     Dates: start: 20090810
  6. OLMETEC [Concomitant]
     Route: 048
     Dates: start: 20090810
  7. LIVACT [Concomitant]
     Route: 048
     Dates: start: 20090810
  8. JUZEN-TAIHO-TO [Concomitant]
     Route: 048
     Dates: start: 20090810

REACTIONS (2)
  - HEPATIC NEOPLASM MALIGNANT [None]
  - PALMAR-PLANTAR ERYTHRODYSAESTHESIA SYNDROME [None]
